FAERS Safety Report 9458497 (Version 1)
Quarter: 2013Q3

REPORT INFORMATION
  Report Type: Spontaneous
  Country: US (occurrence: US)
  Receive Date: 20130814
  Receipt Date: 20130814
  Transmission Date: 20140515
  Serious: Yes (Hospitalization, Other)
  Sender: FDA-Public Use
  Company Number: US-SANOFI-AVENTIS-2013SA060718

PATIENT
  Age: 56 Year
  Sex: Female

DRUGS (1)
  1. AMBIEN [Suspect]

REACTIONS (5)
  - Loss of consciousness [Unknown]
  - Fall [Unknown]
  - Wound [Unknown]
  - Amnesia [Unknown]
  - Somnambulism [Unknown]
